FAERS Safety Report 5524511-0 (Version None)
Quarter: 2007Q4

REPORT INFORMATION
  Report Type: 
  Country: None (occurrence: None)
  Receive Date: 20071122
  Receipt Date: 20071115
  Transmission Date: 20080405
  Serious: Yes (Other)
  Sender: FDA-Public Use
  Company Number: PHMT2007CA01168

PATIENT
  Age: 81 Year
  Sex: Female

DRUGS (9)
  1. ZELNORM [Suspect]
     Indication: IRRITABLE BOWEL SYNDROME
     Dosage: 6MG BID
     Route: 048
     Dates: start: 20070214, end: 20070219
  2. ZELNORM [Suspect]
     Dosage: 6MG QD
     Route: 048
  3. TIAZAC [Concomitant]
     Indication: HYPERTENSION
     Dosage: 240MG ONCE A DAY
  4. ASPIRIN [Concomitant]
     Indication: HYPERTENSION
     Dosage: ONCE A DAY
  5. LORAZAPINE [Concomitant]
     Dosage: 0.5MG AT BEDTIME
  6. SENOKOT [Concomitant]
  7. COLACE [Concomitant]
  8. NEXIUM [Concomitant]
     Dosage: 40MG AM
  9. RANITIDINE HCL [Concomitant]
     Dosage: 300MG

REACTIONS (3)
  - ANGINA PECTORIS [None]
  - ANGIOPLASTY [None]
  - FATIGUE [None]
